FAERS Safety Report 22081200 (Version 1)
Quarter: 2023Q1

REPORT INFORMATION
  Report Type: Report from Study
  Country: US (occurrence: US)
  Receive Date: 20230309
  Receipt Date: 20230309
  Transmission Date: 20230418
  Serious: No
  Sender: FDA-Public Use
  Company Number: US-ACADIA PHARMACEUTICALS INC.-ACA-2023-PIM-000663

PATIENT
  Sex: Female

DRUGS (1)
  1. NUPLAZID [Suspect]
     Active Substance: PIMAVANSERIN TARTRATE
     Indication: Parkinson^s disease
     Dosage: 34 MILLIGRAM, QD
     Route: 048
     Dates: start: 20230128, end: 20230228

REACTIONS (6)
  - Blood pressure increased [Unknown]
  - Drooling [Unknown]
  - Swelling [Unknown]
  - Hallucination [Unknown]
  - Hallucination, visual [Unknown]
  - Drug ineffective [Unknown]
